FAERS Safety Report 18101386 (Version 1)
Quarter: 2020Q3

REPORT INFORMATION
  Report Type: Spontaneous
  Country: US (occurrence: US)
  Receive Date: 20200801
  Receipt Date: 20200801
  Transmission Date: 20201103
  Serious: No
  Sender: FDA-Public Use
  Company Number: US-ASTRAZENECA-2020SE94355

PATIENT
  Sex: Male

DRUGS (1)
  1. IMFINZI [Suspect]
     Active Substance: DURVALUMAB
     Dosage: UNKNOWN
     Route: 042

REACTIONS (6)
  - Constipation [Unknown]
  - Weight decreased [Unknown]
  - Hypersomnia [Unknown]
  - Fatigue [Unknown]
  - Hypophagia [Unknown]
  - Pain [Unknown]
